FAERS Safety Report 13712152 (Version 1)
Quarter: 2017Q3

REPORT INFORMATION
  Report Type: Spontaneous
  Country: US (occurrence: US)
  Receive Date: 20170703
  Receipt Date: 20170703
  Transmission Date: 20171127
  Serious: No
  Sender: FDA-Public Use
  Company Number: US-JNJFOC-20170521863

PATIENT
  Age: 37 Year
  Sex: Female
  Weight: 63.5 kg

DRUGS (6)
  1. MAGNESIUM [Concomitant]
     Active Substance: MAGNESIUM
     Route: 065
  2. TOPAMAX [Suspect]
     Active Substance: TOPIRAMATE
     Indication: MIGRAINE PROPHYLAXIS
     Dosage: CUTTING THE TABLET IN QUARTER
     Route: 048
     Dates: start: 201705, end: 201705
  3. MELATONIN [Concomitant]
     Active Substance: MELATONIN
     Route: 065
  4. RIBOFLAVIN [Concomitant]
     Active Substance: RIBOFLAVIN
     Route: 065
  5. TOPAMAX [Suspect]
     Active Substance: TOPIRAMATE
     Indication: MIGRAINE PROPHYLAXIS
     Dosage: CUTTING THE TABLET INTO HALF
     Route: 048
     Dates: start: 201705, end: 201705
  6. TOPAMAX [Suspect]
     Active Substance: TOPIRAMATE
     Indication: MIGRAINE PROPHYLAXIS
     Dosage: CUTTING THE TABLET INTO HALF
     Route: 048
     Dates: start: 20170521

REACTIONS (2)
  - Migraine with aura [Not Recovered/Not Resolved]
  - Wrong technique in product usage process [Unknown]

NARRATIVE: CASE EVENT DATE: 201705
